FAERS Safety Report 10018568 (Version 1)
Quarter: 2014Q1

REPORT INFORMATION
  Report Type: Spontaneous
  Country: US (occurrence: US)
  Receive Date: 20140318
  Receipt Date: 20140318
  Transmission Date: 20141002
  Serious: Yes (Death, Other)
  Sender: FDA-Public Use
  Company Number: US-BAXTER-2014BAX011860

PATIENT
  Age: 30 Year
  Sex: Male

DRUGS (10)
  1. NEXTERONE_AMIODARONE, HYDROCHLORIDE 1.80 MG/ML_SOLUTION FOR INFUSION_B [Suspect]
     Indication: ARRHYTHMIA
     Route: 065
  2. CLINOLIPID [Suspect]
     Indication: ARRHYTHMIA
     Route: 040
  3. CLINOLIPID [Suspect]
     Route: 040
  4. CLINOLIPID [Suspect]
     Route: 040
  5. CLINOLIPID [Suspect]
     Route: 042
  6. SODIUM BICARBONATE [Suspect]
     Indication: DEHYDRATION
     Route: 042
  7. LORAZEPAM [Suspect]
     Indication: CONVULSION
     Route: 042
  8. LORAZEPAM [Suspect]
     Indication: GRAND MAL CONVULSION
     Route: 042
  9. FOSPHENYTOIN [Suspect]
     Indication: GRAND MAL CONVULSION
     Route: 042
  10. PROPOFOL [Suspect]
     Indication: PRODUCT USED FOR UNKNOWN INDICATION
     Route: 065

REACTIONS (2)
  - Drug ineffective [Unknown]
  - Death [Fatal]
